FAERS Safety Report 19809379 (Version 2)
Quarter: 2021Q3

REPORT INFORMATION
  Report Type: Spontaneous
  Country: US (occurrence: US)
  Receive Date: 20210909
  Receipt Date: 20210916
  Transmission Date: 20211014
  Serious: No
  Sender: FDA-Public Use
  Company Number: US-PFIZER INC-2021760513

PATIENT
  Age: 69 Year
  Sex: Male
  Weight: 79.82 kg

DRUGS (15)
  1. SUTENT [Suspect]
     Active Substance: SUNITINIB MALATE
     Indication: OCULAR CANCER METASTATIC
     Dosage: 25 MG, DAILY
     Route: 048
     Dates: start: 20210617, end: 20210701
  2. TIMOLOL MALEATE. [Concomitant]
     Active Substance: TIMOLOL MALEATE
     Dosage: 0.25 %
  3. SUTENT [Suspect]
     Active Substance: SUNITINIB MALATE
     Indication: ILLNESS
     Dosage: 25 MG (EVERY OTHER DAY)
     Route: 048
     Dates: start: 20210715
  4. IMODIUM [Concomitant]
     Active Substance: LOPERAMIDE HYDROCHLORIDE
     Dosage: 2 MG
  5. TESTOSTERONE. [Concomitant]
     Active Substance: TESTOSTERONE
     Dosage: 100 MG
  6. METRONIDAZOLE. [Concomitant]
     Active Substance: METRONIDAZOLE
     Dosage: 0.75 MG
  7. BRIMONIDINE TARTRATE. [Concomitant]
     Active Substance: BRIMONIDINE TARTRATE
     Dosage: 0.15 %
  8. HYDROCHLOROTHIAZIDE. [Concomitant]
     Active Substance: HYDROCHLOROTHIAZIDE
     Dosage: 12.5 MG
  9. EDARBYCLOR [Concomitant]
     Active Substance: AZILSARTAN KAMEDOXOMIL\CHLORTHALIDONE
     Dosage: UNK
  10. ZYRTEC [Concomitant]
     Active Substance: CETIRIZINE HYDROCHLORIDE
     Dosage: 10 MG
     Route: 048
  11. LISINOPRIL. [Concomitant]
     Active Substance: LISINOPRIL
     Dosage: 5 MG
  12. LISINOPRIL. [Concomitant]
     Active Substance: LISINOPRIL
     Dosage: 40 MG
  13. CLOBETASOL [Concomitant]
     Active Substance: CLOBETASOL
     Dosage: UNK
  14. SUDAFED 12 HOUR [Concomitant]
     Active Substance: PSEUDOEPHEDRINE HYDROCHLORIDE
     Dosage: 120 MG
     Route: 048
  15. DORZOLAMIDE + TIMOLOL [Concomitant]
     Dosage: UNK

REACTIONS (9)
  - Contusion [Unknown]
  - Hypertension [Unknown]
  - Fatigue [Unknown]
  - Glossodynia [Unknown]
  - Product use in unapproved indication [Unknown]
  - Blood pressure increased [Unknown]
  - Headache [Unknown]
  - Blood pressure diastolic increased [Unknown]
  - Cognitive disorder [Unknown]

NARRATIVE: CASE EVENT DATE: 20210731
